FAERS Safety Report 16355148 (Version 1)
Quarter: 2019Q2

REPORT INFORMATION
  Report Type: Report from Study
  Country: US (occurrence: US)
  Receive Date: 20190524
  Receipt Date: 20190524
  Transmission Date: 20190711
  Serious: Yes (Death, Other)
  Sender: FDA-Public Use
  Company Number: US-JAZZ-2019-US-003425

PATIENT
  Sex: Male

DRUGS (1)
  1. VYXEOS [Suspect]
     Active Substance: CYTARABINE\DAUNORUBICIN
     Indication: ACUTE MYELOID LEUKAEMIA
     Dosage: 44/100 MG/M2, DAY 1 AND 3
     Route: 042
     Dates: start: 201807, end: 201807

REACTIONS (2)
  - Intentional dose omission [Unknown]
  - Death [Fatal]

NARRATIVE: CASE EVENT DATE: 201807
